FAERS Safety Report 17420702 (Version 9)
Quarter: 2023Q4

REPORT INFORMATION
  Report Type: Spontaneous
  Country: US (occurrence: US)
  Receive Date: 20200214
  Receipt Date: 20231106
  Transmission Date: 20240110
  Serious: No
  Sender: FDA-Public Use
  Company Number: US-PFIZER INC-2018168385

PATIENT
  Age: 68 Year
  Sex: Female
  Weight: 54.43 kg

DRUGS (1)
  1. XELJANZ XR [Suspect]
     Active Substance: TOFACITINIB CITRATE
     Indication: Rheumatoid arthritis
     Dosage: IN THE MORNING OR AFTERNOON (1 PM)
     Route: 048

REACTIONS (16)
  - Dyspnoea [Unknown]
  - Moaning [Unknown]
  - Ear disorder [Unknown]
  - Hypoacusis [Unknown]
  - Breast mass [Unknown]
  - Bradykinesia [Unknown]
  - Eye disorder [Unknown]
  - Fatigue [Unknown]
  - Headache [Unknown]
  - Neuralgia [Unknown]
  - Tremor [Unknown]
  - Somnolence [Unknown]
  - Pain [Unknown]
  - Muscular weakness [Unknown]
  - Feeling abnormal [Unknown]
  - Product dose omission issue [Unknown]

NARRATIVE: CASE EVENT DATE: 20210315
